FAERS Safety Report 16420855 (Version 1)
Quarter: 2019Q2

REPORT INFORMATION
  Report Type: Spontaneous
  Country: US (occurrence: US)
  Receive Date: 20190612
  Receipt Date: 20190612
  Transmission Date: 20190711
  Serious: No
  Sender: FDA-Public Use
  Company Number: US-US WORLDMEDS, LLC-USW201904-000674

PATIENT
  Age: 58 Year
  Sex: Female
  Weight: 72.57 kg

DRUGS (14)
  1. LUCEMYRA [Suspect]
     Active Substance: LOFEXIDINE
     Indication: DRUG WITHDRAWAL SYNDROME
     Dates: start: 20190326
  2. PROTONIX [Concomitant]
     Active Substance: PANTOPRAZOLE SODIUM
     Indication: ABDOMINAL DISCOMFORT
  3. LUCEMYRA [Suspect]
     Active Substance: LOFEXIDINE
  4. LUCEMYRA [Suspect]
     Active Substance: LOFEXIDINE
     Dosage: THREE TABLETS AT 02:00 AM ON 02/APR/2019
     Dates: start: 20190402
  5. DEXEDRINE [Concomitant]
     Active Substance: DEXTROAMPHETAMINE SULFATE
     Indication: ATTENTION DEFICIT/HYPERACTIVITY DISORDER
  6. CLARITIN [Concomitant]
     Active Substance: LORATADINE
     Indication: HYPERSENSITIVITY
  7. LUCEMYRA [Suspect]
     Active Substance: LOFEXIDINE
  8. HYDROCHLOROTHIAZIDE. [Concomitant]
     Active Substance: HYDROCHLOROTHIAZIDE
     Indication: HYPERTENSION
  9. MYLANTA [Concomitant]
     Active Substance: ALUMINUM HYDROXIDE\DIMETHICONE\MAGNESIUM HYDROXIDE
     Indication: ABDOMINAL DISCOMFORT
  10. DELSYM [Concomitant]
     Active Substance: DEXTROMETHORPHAN
     Indication: COUGH
     Dosage: 12-HOUR - 2 TEASPOONS EVERY 8 HOURS BY MOUTH
  11. MAALOX ANTACID [Concomitant]
     Active Substance: ALUMINUM HYDROXIDE\DIMETHICONE\MAGNESIUM HYDROXIDE
     Indication: ABDOMINAL DISCOMFORT
  12. CAFFEINE. [Concomitant]
     Active Substance: CAFFEINE
     Indication: HEADACHE
  13. TYLENOL [Concomitant]
     Active Substance: ACETAMINOPHEN
     Indication: PAIN
  14. LISINOPRIL. [Concomitant]
     Active Substance: LISINOPRIL
     Indication: HYPERTENSION

REACTIONS (5)
  - Sedation [Not Recovered/Not Resolved]
  - Gastrointestinal pain [Not Recovered/Not Resolved]
  - Retching [Recovered/Resolved]
  - Hypotension [Recovered/Resolved]
  - Treatment noncompliance [Unknown]

NARRATIVE: CASE EVENT DATE: 20190326
